FAERS Safety Report 16854627 (Version 1)
Quarter: 2019Q3

REPORT INFORMATION
  Report Type: Spontaneous
  Country: US (occurrence: US)
  Receive Date: 20190926
  Receipt Date: 20190926
  Transmission Date: 20191005
  Serious: No
  Sender: FDA-Public Use
  Company Number: US-BION-007757

PATIENT
  Sex: Female

DRUGS (1)
  1. IMODIUM A-D [Suspect]
     Active Substance: LOPERAMIDE HYDROCHLORIDE
     Indication: DIARRHOEA
     Dosage: 2 SOFTGELS FIRST LOOSE STOOL, 1 SOFT GEL AFTER EACH SUBSEQUENT LOOSE STOOL
     Route: 048

REACTIONS (3)
  - Flatulence [Unknown]
  - Abdominal distension [Unknown]
  - Nausea [Not Recovered/Not Resolved]
